FAERS Safety Report 9238586 (Version 1)
Quarter: 2013Q2

REPORT INFORMATION
  Report Type: Spontaneous
  Country: US (occurrence: None)
  Receive Date: 20130416
  Receipt Date: 20130416
  Transmission Date: 20140414
  Serious: Yes (Other)
  Sender: FDA-Public Use
  Company Number: CPI 4487

PATIENT
  Age: 1 Month
  Sex: 0

DRUGS (1)
  1. IBUPROFEN [Suspect]
     Indication: PATENT DUCTUS ARTERIOSUS
     Dates: start: 2011

REACTIONS (3)
  - Hyperbilirubinaemia [None]
  - Thrombocytopenia [None]
  - Renal failure [None]
